FAERS Safety Report 9483177 (Version 1)
Quarter: 2013Q3

REPORT INFORMATION
  Report Type: Spontaneous
  Country: DE (occurrence: DE)
  Receive Date: 20130828
  Receipt Date: 20130828
  Transmission Date: 20140515
  Serious: Yes (Hospitalization)
  Sender: FDA-Public Use
  Company Number: DE-PFIZER INC-2013248533

PATIENT
  Age: 49 Year
  Sex: 0

DRUGS (1)
  1. RAMILICH [Suspect]
     Indication: HYPERTENSION
     Dosage: 1 DF, 2X/DAY
     Route: 048

REACTIONS (2)
  - Macroglossia [Recovered/Resolved]
  - Dyspnoea [Recovered/Resolved]
